FAERS Safety Report 6920844-1 (Version None)
Quarter: 2010Q3

REPORT INFORMATION
  Report Type: 
  Country: None (occurrence: None)
  Receive Date: 20100812
  Receipt Date: 20100805
  Transmission Date: 20110219
  Serious: Yes (Disabling, Other)
  Sender: FDA-Public Use
  Company Number: CA-ALLERGAN-1010232US

PATIENT
  Age: 49 Year
  Sex: Female

DRUGS (6)
  1. BOTOX [Suspect]
     Indication: PRODUCT USED FOR UNKNOWN INDICATION
     Dosage: 100 UNITS, SINGLE
     Route: 030
  2. ADALAT CC [Concomitant]
     Route: 048
  3. DIOVAN [Concomitant]
     Route: 048
  4. ELMIRON [Concomitant]
  5. OXAZEPAM [Concomitant]
     Route: 048
  6. RHOVANE [Concomitant]
     Route: 048

REACTIONS (9)
  - DYSPHAGIA [None]
  - FACIAL PARESIS [None]
  - MASTICATION DISORDER [None]
  - PHOTOPHOBIA [None]
  - SPEECH DISORDER [None]
  - STRABISMUS [None]
  - VIITH NERVE PARALYSIS [None]
  - VISUAL IMPAIRMENT [None]
  - WEIGHT DECREASED [None]
